FAERS Safety Report 4664828-5 (Version None)
Quarter: 2005Q2

REPORT INFORMATION
  Report Type: 
  Country: None (occurrence: None)
  Receive Date: 20050516
  Receipt Date: 20050506
  Transmission Date: 20051028
  Serious: Yes (Hospitalization)
  Sender: FDA-Public Use
  Company Number: CH-2005-001739

PATIENT
  Age: 34 Year
  Sex: Female
  Weight: 68.9 kg

DRUGS (2)
  1. MIRENA [Suspect]
     Indication: CONTRACEPTION
     Dosage: 20 UG/DAY, CONT, INTR-UTERINE
     Route: 015
     Dates: start: 20010707, end: 20050304
  2. APHENYLBARBIT                     (PHENOBARBITAL SODIUM) [Concomitant]

REACTIONS (1)
  - BREAST CANCER FEMALE [None]
